FAERS Safety Report 17507968 (Version 8)
Quarter: 2025Q3

REPORT INFORMATION
  Report Type: Report from Study
  Country: US (occurrence: US)
  Receive Date: 20200306
  Receipt Date: 20250910
  Transmission Date: 20251021
  Serious: No
  Sender: TAKEDA
  Company Number: US-SHIRE-US202008572

PATIENT
  Age: 25 Year
  Sex: Female
  Weight: 78 kg

DRUGS (23)
  1. HUMAN IMMUNOGLOBULIN G\HYALURONIDASE RECOMBINANT HUMAN [Suspect]
     Active Substance: HUMAN IMMUNOGLOBULIN G\HYALURONIDASE (HUMAN RECOMBINANT)
     Indication: Immune system disorder
     Dosage: 35 GRAM, Q4WEEKS
     Dates: start: 20181219
  2. HUMAN IMMUNOGLOBULIN G\HYALURONIDASE RECOMBINANT HUMAN [Suspect]
     Active Substance: HUMAN IMMUNOGLOBULIN G\HYALURONIDASE (HUMAN RECOMBINANT)
     Indication: Primary immunodeficiency syndrome
     Dosage: 35 GRAM, Q4WEEKS
  3. HUMAN IMMUNOGLOBULIN G\HYALURONIDASE RECOMBINANT HUMAN [Suspect]
     Active Substance: HUMAN IMMUNOGLOBULIN G\HYALURONIDASE (HUMAN RECOMBINANT)
     Indication: Immunodeficiency common variable
  4. ACETAMINOPHEN [Concomitant]
     Active Substance: ACETAMINOPHEN
  5. SODIUM CHLORIDE [Concomitant]
     Active Substance: SODIUM CHLORIDE
  6. EPINEPHRINE [Concomitant]
     Active Substance: EPINEPHRINE
  7. SIROLIMUS [Concomitant]
     Active Substance: SIROLIMUS
  8. ZOLOFT [Concomitant]
     Active Substance: SERTRALINE HYDROCHLORIDE
  9. VITAMIN D3 [Concomitant]
     Active Substance: CHOLECALCIFEROL
  10. VITAMIN B [Concomitant]
     Active Substance: VITAMIN B
  11. CORDRAN [Concomitant]
     Active Substance: FLURANDRENOLIDE
     Indication: Product used for unknown indication
  12. Omega [Concomitant]
  13. AVEENO [Concomitant]
     Active Substance: DIMETHICONE\HOMOSALATE\OCTINOXATE\OCTISALATE\TITANIUM DIOXIDE
     Dosage: UNK UNK, QD
  14. ASPIRIN [Concomitant]
     Active Substance: ASPIRIN
  15. SPIRONOLACTONE [Concomitant]
     Active Substance: SPIRONOLACTONE
  16. Lmx [Concomitant]
  17. DIPHENHYDRAMINE HYDROCHLORIDE [Concomitant]
     Active Substance: DIPHENHYDRAMINE HYDROCHLORIDE
  18. TYLENOL EXTRA STRENGTH [Concomitant]
     Active Substance: ACETAMINOPHEN
  19. VITAMIN C [Concomitant]
     Active Substance: ASCORBIC ACID
  20. KEPPRA [Concomitant]
     Active Substance: LEVETIRACETAM
  21. SULFAMETHOXAZOLE\TRIMETHOPRIM [Concomitant]
     Active Substance: SULFAMETHOXAZOLE\TRIMETHOPRIM
  22. IMIQUIMOD [Concomitant]
     Active Substance: IMIQUIMOD
  23. PROBIOTICS NOS [Concomitant]
     Active Substance: PROBIOTICS NOS

REACTIONS (14)
  - Nasopharyngitis [Unknown]
  - Ear infection [Unknown]
  - Heavy menstrual bleeding [Unknown]
  - Menstrual disorder [Unknown]
  - Gastroenteritis viral [Unknown]
  - Stress [Unknown]
  - Skin papilloma [Unknown]
  - Viral infection [Unknown]
  - COVID-19 [Recovered/Resolved]
  - Product dose omission issue [Unknown]
  - Eczema [Unknown]
  - Rash [Unknown]
  - Sinusitis [Unknown]
  - Parotitis [Unknown]

NARRATIVE: CASE EVENT DATE: 20231201
